FAERS Safety Report 25120451 (Version 1)
Quarter: 2025Q1

REPORT INFORMATION
  Report Type: Report from Study
  Country: TH (occurrence: TH)
  Receive Date: 20250325
  Receipt Date: 20250325
  Transmission Date: 20250409
  Serious: Yes (Other)
  Sender: EISAI
  Company Number: TH-Eisai-EC-2025-186355

PATIENT
  Age: 54 Year
  Sex: Male

DRUGS (2)
  1. LENVIMA [Suspect]
     Active Substance: LENVATINIB
     Indication: Hepatocellular carcinoma
     Dosage: WITHHOLD FOR 3 DAYS
     Dates: start: 20241107, end: 20241128
  2. LENVIMA [Suspect]
     Active Substance: LENVATINIB
     Dates: start: 20241201, end: 20250220

REACTIONS (2)
  - Hepatitis [Not Recovered/Not Resolved]
  - Liver function test increased [Not Recovered/Not Resolved]

NARRATIVE: CASE EVENT DATE: 20250101
